FAERS Safety Report 25737386 (Version 2)
Quarter: 2025Q3

REPORT INFORMATION
  Report Type: Spontaneous
  Country: JP (occurrence: JP)
  Receive Date: 20250828
  Receipt Date: 20250915
  Transmission Date: 20251021
  Serious: Yes (Hospitalization)
  Sender: ABBVIE
  Company Number: JP-ABBVIE-6434905

PATIENT
  Age: 70 Year
  Sex: Male

DRUGS (7)
  1. VENCLEXTA [Suspect]
     Active Substance: VENETOCLAX
     Indication: Acute myeloid leukaemia
     Route: 048
     Dates: start: 20250703, end: 20250717
  2. FLUTICASONE [Suspect]
     Active Substance: FLUTICASONE
     Indication: Chronic sinusitis
     Route: 045
  3. AZACITIDINE [Suspect]
     Active Substance: AZACITIDINE
     Indication: Acute myeloid leukaemia
     Route: 065
     Dates: start: 20250703, end: 20250710
  4. AMLODIPINE [Suspect]
     Active Substance: AMLODIPINE BESYLATE
     Indication: Hypertension
     Route: 048
  5. ESOMEPRAZOLE [Suspect]
     Active Substance: ESOMEPRAZOLE
     Indication: Product used for unknown indication
     Route: 048
  6. CARBOCYSTEINE [Suspect]
     Active Substance: CARBOCYSTEINE
     Indication: Chronic sinusitis
     Route: 048
  7. FEXOFENADINE HYDROCHLORIDE [Suspect]
     Active Substance: FEXOFENADINE HYDROCHLORIDE
     Indication: Chronic sinusitis
     Route: 048

REACTIONS (2)
  - Interstitial lung disease [Recovering/Resolving]
  - General physical condition abnormal [Unknown]

NARRATIVE: CASE EVENT DATE: 20250701
